FAERS Safety Report 6070357-7 (Version None)
Quarter: 2009Q1

REPORT INFORMATION
  Report Type: 
  Country: None (occurrence: None)
  Receive Date: 20090209
  Receipt Date: 20090130
  Transmission Date: 20090719
  Serious: Yes (Hospitalization, Other)
  Sender: FDA-Public Use
  Company Number: JP-ELI_LILLY_AND_COMPANY-JP200902001578

PATIENT
  Age: 26 Year
  Sex: Female

DRUGS (3)
  1. HUMULIN R [Suspect]
     Indication: TYPE 1 DIABETES MELLITUS
     Dosage: 0.9 U, EVERY HOUR
     Route: 058
     Dates: start: 20040701
  2. HUMULIN R [Suspect]
     Dosage: 6 U, 3/D
     Route: 058
     Dates: start: 20040701
  3. INSULIN [Concomitant]
     Indication: TYPE 1 DIABETES MELLITUS
     Route: 058
     Dates: end: 20040701

REACTIONS (4)
  - DRUG EXPOSURE DURING PREGNANCY [None]
  - PREGNANCY INDUCED HYPERTENSION [None]
  - PREMATURE LABOUR [None]
  - RETINAL DETACHMENT [None]
